FAERS Safety Report 6293342-9 (Version None)
Quarter: 2009Q3

REPORT INFORMATION
  Report Type: 
  Country: None (occurrence: None)
  Receive Date: 20090731
  Receipt Date: 20090727
  Transmission Date: 20100115
  Serious: Yes (Death, Other)
  Sender: FDA-Public Use
  Company Number: PHHY2009AU31107

PATIENT
  Age: 38 Year
  Sex: Male

DRUGS (8)
  1. CICLOSPORIN [Suspect]
     Indication: STEM CELL TRANSPLANT
     Dosage: 3 MG/KG/DAY
  2. CYCLOPHOSPHAMIDE [Concomitant]
     Dosage: 120 MG/KG
  3. GANCICLOVIR [Concomitant]
     Indication: INFECTION PROPHYLAXIS
     Dosage: UNK
  4. SULFAMETHOXAZOLE AND TRIMETHOPRIM [Concomitant]
     Indication: INFECTION PROPHYLAXIS
  5. ITRACONAZOLE [Concomitant]
     Indication: INFECTION PROPHYLAXIS
  6. TENOFOVIR [Concomitant]
     Indication: ANTIRETROVIRAL THERAPY
     Dosage: UNK
  7. STAVUDINE [Concomitant]
     Indication: ANTIRETROVIRAL THERAPY
  8. LAMIVUDINE [Concomitant]
     Indication: ANTIRETROVIRAL THERAPY

REACTIONS (7)
  - BK VIRUS INFECTION [None]
  - BLOOD HIV RNA INCREASED [None]
  - CHRONIC ALLOGRAFT NEPHROPATHY [None]
  - CYSTITIS HAEMORRHAGIC [None]
  - ESCHERICHIA SEPSIS [None]
  - NEUTROPENIA [None]
  - RENAL FAILURE [None]
